FAERS Safety Report 4787279-1 (Version None)
Quarter: 2005Q3

REPORT INFORMATION
  Report Type: 
  Country: None (occurrence: None)
  Receive Date: 20050930
  Receipt Date: 20050921
  Transmission Date: 20060218
  Serious: Yes (Other)
  Sender: FDA-Public Use
  Company Number: 2005-03557

PATIENT
  Age: 5 Year
  Sex: Female

DRUGS (1)
  1. PROPRANOLOL [Suspect]
     Indication: HEADACHE
     Dates: start: 20040201, end: 20040501

REACTIONS (1)
  - BENIGN INTRACRANIAL HYPERTENSION [None]
